FAERS Safety Report 12928882 (Version 3)
Quarter: 2017Q1

REPORT INFORMATION
  Report Type: Spontaneous
  Country: US (occurrence: US)
  Receive Date: 20161110
  Receipt Date: 20170110
  Transmission Date: 20170428
  Serious: No
  Sender: FDA-Public Use
  Company Number: US-BAYER-2016-210487

PATIENT
  Age: 73 Year
  Sex: Female
  Weight: 80.73 kg

DRUGS (21)
  1. ALEVE [Suspect]
     Active Substance: NAPROXEN SODIUM
     Indication: PAIN
     Dosage: 1 DF, BID
     Route: 048
     Dates: start: 201607, end: 20161229
  2. ALEVE [Suspect]
     Active Substance: NAPROXEN SODIUM
     Indication: PAIN
     Dosage: 2 DF, BID
     Route: 048
     Dates: start: 201605
  3. BAYER LOW DOSE [Suspect]
     Active Substance: ASPIRIN
     Indication: ISCHAEMIC HEART DISEASE PROPHYLAXIS
     Dosage: 2 DF, QD
     Route: 048
  4. LIZINOPRILS [Concomitant]
  5. DIPROGENTA [Concomitant]
     Active Substance: BETAMETHASONE DIPROPIONATE\GENTAMICIN SULFATE
  6. ALEVE [Suspect]
     Active Substance: NAPROXEN SODIUM
     Indication: PAIN
     Dosage: 2 DF, BID
     Route: 048
     Dates: start: 201606, end: 201607
  7. ALEVE [Suspect]
     Active Substance: NAPROXEN SODIUM
     Indication: PAIN
     Dosage: 1 DF, TID
     Dates: start: 201612
  8. FUROSEMIDE. [Concomitant]
     Active Substance: FUROSEMIDE
  9. ALPRAZOLAM. [Concomitant]
     Active Substance: ALPRAZOLAM
  10. PROPRANOLOL [Concomitant]
     Active Substance: PROPRANOLOL HYDROCHLORIDE
  11. TIMOLOL. [Concomitant]
     Active Substance: TIMOLOL
  12. VOLTARENE [Concomitant]
     Active Substance: DICLOFENAC SODIUM
  13. OXYBUTIN [Concomitant]
     Active Substance: OXYBUTYNIN
  14. LATANOPROST. [Concomitant]
     Active Substance: LATANOPROST
  15. AMITRIPTYLINE [Concomitant]
     Active Substance: AMITRIPTYLINE
  16. FLUTICASONE. [Concomitant]
     Active Substance: FLUTICASONE
  17. SIMVASTATIN. [Concomitant]
     Active Substance: SIMVASTATIN
  18. PRILOSEC [Concomitant]
     Active Substance: OMEPRAZOLE MAGNESIUM
  19. ALEVE [Suspect]
     Active Substance: NAPROXEN SODIUM
     Indication: PAIN
     Dosage: 2 DF, BID
     Route: 048
     Dates: start: 201605, end: 20161101
  20. GABAPENTIN. [Concomitant]
     Active Substance: GABAPENTIN
  21. AMLODIPINE [Concomitant]
     Active Substance: AMLODIPINE BESYLATE

REACTIONS (7)
  - Medication residue present [Unknown]
  - Drug effect incomplete [Unknown]
  - Drug ineffective [None]
  - Off label use [None]
  - Poor quality drug administered [Unknown]
  - Product use issue [None]
  - Product use issue [Unknown]

NARRATIVE: CASE EVENT DATE: 201606
